FAERS Safety Report 25476121 (Version 1)
Quarter: 2025Q2

REPORT INFORMATION
  Report Type: Spontaneous
  Country: US (occurrence: US)
  Receive Date: 20250625
  Receipt Date: 20250625
  Transmission Date: 20250717
  Serious: No
  Sender: ABBVIE
  Company Number: US-ABBVIE-6333113

PATIENT
  Age: 82 Year
  Sex: Female
  Weight: 77.11 kg

DRUGS (2)
  1. LINZESS [Suspect]
     Active Substance: LINACLOTIDE
     Indication: Constipation
     Dosage: 145 MICROGRAM; FORM STRENGTH: 145 MICROGRAM; DOSE REDUCED
     Route: 048
     Dates: start: 20250614
  2. LINZESS [Suspect]
     Active Substance: LINACLOTIDE
     Indication: Constipation
     Dosage: 290 MICROGRAM; FORM STRENGTH: 290 MICROGRAM
     Route: 048
     Dates: start: 20250610, end: 20250613

REACTIONS (1)
  - Diarrhoea [Not Recovered/Not Resolved]

NARRATIVE: CASE EVENT DATE: 20250610
